FAERS Safety Report 21136979 (Version 1)
Quarter: 2022Q3

REPORT INFORMATION
  Report Type: Spontaneous
  Country: US (occurrence: None)
  Receive Date: 20220726
  Receipt Date: 20220726
  Transmission Date: 20221027
  Serious: Yes (Other)
  Sender: FDA-Public Use
  Company Number: None

PATIENT
  Age: 47 Year
  Sex: Female
  Weight: 69.75 kg

DRUGS (6)
  1. .DELTA.8-TETRAHYDROCANNABINOL\HERBALS [Suspect]
     Active Substance: .DELTA.8-TETRAHYDROCANNABINOL\HERBALS
     Indication: Arthritis
     Dosage: OTHER QUANTITY : 1 PREROLLED CIGARETT;?OTHER FREQUENCY : SMOKED SAME CIGARE;?
     Route: 055
     Dates: start: 20220723, end: 20220726
  2. .DELTA.8-TETRAHYDROCANNABINOL\HERBALS [Suspect]
     Active Substance: .DELTA.8-TETRAHYDROCANNABINOL\HERBALS
     Indication: Anxiety
  3. VITAMIN D [Concomitant]
     Active Substance: VITAMIN D NOS
  4. HYDROXYCHLOROQUINE [Concomitant]
     Active Substance: HYDROXYCHLOROQUINE
  5. CALCIUM [Concomitant]
     Active Substance: CALCIUM
  6. VITAMIN B [Concomitant]
     Active Substance: VITAMIN B

REACTIONS (6)
  - Anxiety [None]
  - Muscle rigidity [None]
  - Panic attack [None]
  - Feeling abnormal [None]
  - Cognitive disorder [None]
  - Emotional disorder [None]

NARRATIVE: CASE EVENT DATE: 20220726
